FAERS Safety Report 18031163 (Version 5)
Quarter: 2020Q4

REPORT INFORMATION
  Report Type: Report from Study
  Country: US (occurrence: US)
  Receive Date: 20200716
  Receipt Date: 20201006
  Transmission Date: 20210113
  Serious: No
  Sender: FDA-Public Use
  Company Number: US-DSJP-DSU-2020-120380

PATIENT
  Sex: Female

DRUGS (2)
  1. PEXIDARTINIB [Suspect]
     Active Substance: PEXIDARTINIB
     Dosage: 400 MG, BID
     Route: 048
     Dates: start: 20200627
  2. PEXIDARTINIB [Suspect]
     Active Substance: PEXIDARTINIB
     Indication: SYNOVITIS
     Dosage: 400 MG, BID
     Route: 048
     Dates: start: 20200627

REACTIONS (10)
  - Fatigue [Unknown]
  - Ageusia [Recovered/Resolved]
  - Liver function test abnormal [Recovering/Resolving]
  - Taste disorder [Unknown]
  - Hair colour changes [Recovered/Resolved]
  - Constipation [Recovered/Resolved]
  - Pruritus [Unknown]
  - Feeling abnormal [Unknown]
  - Lacrimation increased [Not Recovered/Not Resolved]
  - Product dose omission issue [Not Recovered/Not Resolved]

NARRATIVE: CASE EVENT DATE: 2020
